FAERS Safety Report 11695456 (Version 2)
Quarter: 2015Q4

REPORT INFORMATION
  Report Type: Spontaneous
  Country: CN (occurrence: CN)
  Receive Date: 20151104
  Receipt Date: 20151124
  Transmission Date: 20160304
  Serious: Yes (Death, Other)
  Sender: FDA-Public Use
  Company Number: PHHY2015CN143366

PATIENT
  Sex: Female

DRUGS (3)
  1. PROGESTERONE. [Suspect]
     Active Substance: PROGESTERONE
     Indication: UTERINE ATONY
     Route: 065
  2. MAGNESIUM [Suspect]
     Active Substance: MAGNESIUM
     Indication: UTERINE ATONY
     Route: 065
  3. WARFARIN [Suspect]
     Active Substance: WARFARIN
     Indication: PRODUCT USED FOR UNKNOWN INDICATION
     Route: 065

REACTIONS (2)
  - Foetal death [Fatal]
  - Maternal exposure during pregnancy [Unknown]
